FAERS Safety Report 4652523-8 (Version None)
Quarter: 2005Q2

REPORT INFORMATION
  Report Type: 
  Country: None (occurrence: None)
  Receive Date: 20050502
  Receipt Date: 20050414
  Transmission Date: 20051028
  Serious: Yes (Hospitalization)
  Sender: FDA-Public Use
  Company Number: 2005-02-0690

PATIENT
  Age: 70 Year
  Sex: Female

DRUGS (14)
  1. THEO-DUR [Suspect]
     Indication: ASTHMA
     Dosage: SEE IMAGE
     Route: 048
     Dates: start: 20000119, end: 20010313
  2. THEO-DUR [Suspect]
     Indication: ASTHMA
     Dosage: SEE IMAGE
     Route: 048
     Dates: start: 20010313, end: 20030626
  3. THEO-DUR [Suspect]
     Indication: ASTHMA
     Dosage: SEE IMAGE
     Route: 048
     Dates: start: 20000119, end: 20040701
  4. THEO-DUR [Suspect]
     Indication: ASTHMA
     Dosage: SEE IMAGE
     Route: 048
     Dates: start: 20010626, end: 20040701
  5. . [Concomitant]
  6. ALLOPURINOL [Suspect]
     Indication: HYPERURICAEMIA
     Dosage: 100MG ORAL
     Route: 048
     Dates: start: 20010703, end: 20040710
  7. . [Concomitant]
  8. BECLOMETHASONE DIPROPIONATE [Suspect]
     Indication: ASTHMA
     Dosage: ORAL AER INH
     Route: 048
     Dates: start: 20000119, end: 20010918
  9. BECLOMETHASONE DIPROPIONATE [Suspect]
     Indication: ASTHMA
     Dosage: ORAL AER INH
     Route: 048
     Dates: start: 20000119, end: 20040710
  10. BECLOMETHASONE DIPROPIONATE [Suspect]
     Indication: ASTHMA
     Dosage: ORAL AER INH
     Route: 048
     Dates: start: 20010918, end: 20040710
  11. PRAVASTATIN SODIUM [Suspect]
     Dosage: ORAL
     Route: 048
     Dates: start: 20000119, end: 20010313
  12. PRAVASTATIN SODIUM [Suspect]
     Dosage: ORAL
     Route: 048
     Dates: start: 20000119, end: 20030306
  13. PRAVASTATIN SODIUM [Suspect]
     Dosage: ORAL
     Route: 048
     Dates: start: 20010313, end: 20030306
  14. LIPITOR [Suspect]
     Dosage: ORAL
     Route: 048
     Dates: start: 20030306, end: 20040710

REACTIONS (4)
  - DRUG INEFFECTIVE [None]
  - DRUG LEVEL DECREASED [None]
  - HYPERURICAEMIA [None]
  - HYPOKALAEMIA [None]
